FAERS Safety Report 7729915-3 (Version None)
Quarter: 2011Q3

REPORT INFORMATION
  Report Type: 
  Country: None (occurrence: None)
  Receive Date: 20110906
  Receipt Date: 20110823
  Transmission Date: 20111222
  Serious: Yes (Hospitalization, Other)
  Sender: FDA-Public Use
  Company Number: PHFR2011IE00756

PATIENT
  Sex: Male

DRUGS (9)
  1. LANSOPRAZOLE [Concomitant]
     Indication: GASTRIC ULCER
     Dosage: 30 MG/DAY
     Route: 048
  2. DALMANE [Concomitant]
     Dosage: 15 MG/DAY
     Route: 048
  3. WARFARIN SODIUM [Concomitant]
     Indication: ATRIAL FLUTTER
  4. KEMADRIN [Concomitant]
     Indication: EXTRAPYRAMIDAL DISORDER
     Dosage: 5 MG/DAY
     Route: 048
  5. CLONAZEPAM [Concomitant]
     Dosage: 0.5 MG/DAY
     Route: 048
     Dates: start: 20101230, end: 20110103
  6. CLOZAPINE [Suspect]
     Route: 048
     Dates: start: 20110218, end: 20110808
  7. BISOPROLOL FUMARATE [Concomitant]
     Indication: BLOOD PRESSURE INCREASED
     Route: 048
  8. CLOZAPINE [Suspect]
     Indication: SCHIZOPHRENIA
     Dosage: 100 MG/DAY
     Route: 048
     Dates: start: 20101220, end: 20110106
  9. ACETYLSALICYLIC ACID SRT [Concomitant]
     Indication: CARDIOVASCULAR DISORDER
     Dosage: 75 MG/DAY
     Route: 048

REACTIONS (12)
  - UPPER RESPIRATORY TRACT INFECTION [None]
  - WHITE BLOOD CELL COUNT INCREASED [None]
  - INFLUENZA LIKE ILLNESS [None]
  - CARDIAC ENZYMES INCREASED [None]
  - HEADACHE [None]
  - PNEUMONIA [None]
  - CEREBRAL HAEMORRHAGE [None]
  - BLOOD CREATINE PHOSPHOKINASE INCREASED [None]
  - SEPSIS [None]
  - TROPONIN INCREASED [None]
  - LOWER RESPIRATORY TRACT INFECTION [None]
  - COUGH [None]
